FAERS Safety Report 9292588 (Version 2)
Quarter: 2013Q2

REPORT INFORMATION
  Report Type: Report from Study
  Country: JP (occurrence: JP)
  Receive Date: 20130516
  Receipt Date: 20130531
  Transmission Date: 20140414
  Serious: Yes (Other)
  Sender: FDA-Public Use
  Company Number: JP-ASTRAZENECA-2013SE32950

PATIENT
  Age: 56 Year
  Sex: Male

DRUGS (13)
  1. CRESTOR [Suspect]
     Indication: HYPERCHOLESTEROLAEMIA
     Route: 048
     Dates: start: 20101021
  2. MEDET [Concomitant]
     Indication: DIABETES MELLITUS
     Route: 065
     Dates: start: 20080926
  3. HUMALOG MIX [Concomitant]
     Indication: DIABETES MELLITUS
     Route: 065
     Dates: start: 20110324, end: 20110518
  4. HUMALOG MIX [Concomitant]
     Indication: DIABETES MELLITUS
     Route: 065
     Dates: start: 20110519, end: 20110713
  5. HUMALOG MIX [Concomitant]
     Indication: DIABETES MELLITUS
     Route: 065
     Dates: start: 20110714, end: 20120114
  6. HUMALOG MIX [Concomitant]
     Indication: DIABETES MELLITUS
     Route: 065
     Dates: start: 20120105, end: 20120215
  7. HUMALOG MIX [Concomitant]
     Indication: DIABETES MELLITUS
     Route: 065
     Dates: start: 20120216, end: 20120425
  8. HUMALOG MIX [Concomitant]
     Indication: DIABETES MELLITUS
     Route: 065
     Dates: start: 20120426, end: 20120606
  9. HUMALOG MIX [Concomitant]
     Indication: DIABETES MELLITUS
     Route: 065
     Dates: start: 20120607, end: 20121121
  10. HUMALOG MIX [Concomitant]
     Indication: DIABETES MELLITUS
     Route: 065
     Dates: start: 20121122
  11. MAGMITT [Concomitant]
     Route: 065
     Dates: start: 20081023
  12. KINEX [Concomitant]
     Route: 065
     Dates: start: 20120127
  13. GERNART [Concomitant]
     Dosage: OPTIMAL DOSE
     Route: 062
     Dates: start: 20130227, end: 20130304

REACTIONS (1)
  - Furuncle [Recovered/Resolved]
